FAERS Safety Report 25425593 (Version 2)
Quarter: 2025Q2

REPORT INFORMATION
  Report Type: Spontaneous
  Country: RS (occurrence: RS)
  Receive Date: 20250611
  Receipt Date: 20250620
  Transmission Date: 20250716
  Serious: Yes (Hospitalization)
  Sender: ALEXION PHARMACEUTICALS
  Company Number: RS-ASTRAZENECA-202506BKN006616RS

PATIENT

DRUGS (5)
  1. SYMBICORT [Suspect]
     Active Substance: BUDESONIDE\FORMOTEROL FUMARATE DIHYDRATE
  2. Beclometason/formoterol viatris [Concomitant]
     Route: 065
  3. TIOTROPIUM BROMIDE [Concomitant]
     Active Substance: TIOTROPIUM BROMIDE
     Route: 065
  4. FENOTEROL\IPRATROPIUM BROMIDE [Concomitant]
     Active Substance: FENOTEROL\IPRATROPIUM BROMIDE
     Route: 065
  5. MONTELUKAST [Concomitant]
     Active Substance: MONTELUKAST
     Route: 065

REACTIONS (1)
  - Asthma [Unknown]
